FAERS Safety Report 9740100 (Version 1)
Quarter: 2013Q4

REPORT INFORMATION
  Report Type: Report from Study
  Country: TR (occurrence: TR)
  Receive Date: 20131209
  Receipt Date: 20131209
  Transmission Date: 20140711
  Serious: Yes (Death)
  Sender: FDA-Public Use
  Company Number: TR-GLAXOSMITHKLINE-B0951391A

PATIENT
  Sex: Female
  Weight: 75 kg

DRUGS (6)
  1. ASPIRIN [Suspect]
     Indication: CARDIAC FAILURE
  2. RYTMONORM [Suspect]
     Indication: ATRIAL FIBRILLATION
     Dosage: 150MG TWICE PER DAY
     Route: 048
  3. CORDARONE [Suspect]
  4. BELOC [Suspect]
  5. BETA BLOCKER [Concomitant]
     Indication: CARDIAC FAILURE
  6. PROTON PUMP INHIBITOR [Concomitant]
     Indication: PEPTIC ULCER

REACTIONS (1)
  - Death [Fatal]
